FAERS Safety Report 4282338-4 (Version None)
Quarter: 2004Q1

REPORT INFORMATION
  Report Type: 
  Country: None (occurrence: None)
  Receive Date: 20040109
  Receipt Date: 20030318
  Transmission Date: 20041129
  Serious: Yes (Other)
  Sender: FDA-Public Use
  Company Number: PHEH2003US01807

PATIENT
  Age: 32 Year
  Sex: Female
  Weight: 76.2 kg

DRUGS (3)
  1. METHERGINE [Suspect]
     Indication: UMBILICAL HAEMORRHAGE ACQUIRED
     Dosage: 0.2 MG, ONCE/SINGLE, ORAL
     Route: 048
     Dates: start: 20020705, end: 20020705
  2. IBUPROFEN [Concomitant]
  3. DOCUSATE SODIUM [Concomitant]

REACTIONS (8)
  - ANAPHYLACTIC REACTION [None]
  - BURNING SENSATION [None]
  - NASAL CONGESTION [None]
  - RHINORRHOEA [None]
  - STRIDOR [None]
  - SWELLING FACE [None]
  - THROAT IRRITATION [None]
  - TINNITUS [None]
